FAERS Safety Report 10418381 (Version 1)
Quarter: 2014Q3

REPORT INFORMATION
  Report Type: Report from Study
  Country: BR (occurrence: BR)
  Receive Date: 20140829
  Receipt Date: 20140829
  Transmission Date: 20150326
  Serious: Yes (Other)
  Sender: FDA-Public Use
  Company Number: BR-US-EMD SERONO, INC.-7316069

PATIENT
  Sex: Female

DRUGS (1)
  1. REBIF [Suspect]
     Active Substance: INTERFERON BETA-1A
     Indication: RELAPSING-REMITTING MULTIPLE SCLEROSIS
     Dates: start: 20071008

REACTIONS (6)
  - Nodule [Not Recovered/Not Resolved]
  - Skin discolouration [Not Recovered/Not Resolved]
  - Haematoma [Not Recovered/Not Resolved]
  - Feeling hot [Not Recovered/Not Resolved]
  - Tenderness [Not Recovered/Not Resolved]
  - Accident at home [Not Recovered/Not Resolved]

NARRATIVE: CASE EVENT DATE: 2014
